FAERS Safety Report 5781737-9 (Version None)
Quarter: 2008Q2

REPORT INFORMATION
  Report Type: 
  Country: None (occurrence: None)
  Receive Date: 20080623
  Receipt Date: 20080617
  Transmission Date: 20081010
  Serious: Yes (Hospitalization)
  Sender: FDA-Public Use
  Company Number: AR-BRISTOL-MYERS SQUIBB COMPANY-14219471

PATIENT
  Age: 59 Year
  Sex: Female

DRUGS (5)
  1. ORENCIA [Suspect]
     Indication: RHEUMATOID ARTHRITIS
     Route: 042
     Dates: start: 20080502
  2. MEPREDNISONE [Suspect]
  3. NAPROXEN [Suspect]
  4. SALMETEROL [Concomitant]
  5. VALSARTAN + HCTZ [Concomitant]

REACTIONS (2)
  - SEPTIC SHOCK [None]
  - URINARY TRACT INFECTION [None]
